FAERS Safety Report 8976241 (Version 2)
Quarter: 2012Q4

REPORT INFORMATION
  Report Type: 
  Country: IN (occurrence: IN)
  Receive Date: 20121220
  Receipt Date: 20121226
  Transmission Date: 20130627
  Serious: Yes (Other)
  Sender: FDA-Public Use
  Company Number: PHHY2012IN115963

PATIENT
  Age: 7 Year
  Sex: Female

DRUGS (2)
  1. CARBAMAZEPINE [Suspect]
  2. HYDROCORTISONE [Concomitant]

REACTIONS (9)
  - Cardiac arrest [Recovering/Resolving]
  - Hyperkalaemia [Recovering/Resolving]
  - Hemiparesis [Recovering/Resolving]
  - Neuroleptic malignant syndrome [Recovering/Resolving]
  - Pyrexia [Recovered/Resolved]
  - Muscle spasticity [Recovering/Resolving]
  - Dyskinesia [Recovering/Resolving]
  - Blood creatine phosphokinase increased [Recovering/Resolving]
  - Germ cell cancer [Unknown]
